FAERS Safety Report 10801772 (Version 1)
Quarter: 2015Q1

REPORT INFORMATION
  Report Type: Report from Study
  Country: FR (occurrence: FR)
  Receive Date: 20150217
  Receipt Date: 20150217
  Transmission Date: 20150721
  Serious: Yes (Death, Hospitalization)
  Sender: FDA-Public Use
  Company Number: FR-ROCHE-1160643

PATIENT
  Age: 72 Year
  Sex: Female

DRUGS (8)
  1. RITUXIMAB [Suspect]
     Active Substance: RITUXIMAB
     Route: 042
     Dates: start: 20081211
  2. RITUXIMAB [Suspect]
     Active Substance: RITUXIMAB
     Route: 042
     Dates: start: 20080925
  3. RITUXIMAB [Suspect]
     Active Substance: RITUXIMAB
     Route: 042
     Dates: start: 20071011
  4. CORTANCYL [Concomitant]
     Active Substance: PREDNISONE
     Route: 065
  5. RITUXIMAB [Suspect]
     Active Substance: RITUXIMAB
     Route: 042
     Dates: start: 20070926
  6. CORTANCYL [Concomitant]
     Active Substance: PREDNISONE
     Route: 065
  7. RITUXIMAB [Suspect]
     Active Substance: RITUXIMAB
     Indication: RHEUMATOID ARTHRITIS
     Route: 042
     Dates: start: 20061013
  8. RITUXIMAB [Suspect]
     Active Substance: RITUXIMAB
     Route: 042
     Dates: start: 20061031

REACTIONS (13)
  - Pyrexia [Fatal]
  - Lung disorder [Fatal]
  - Brain injury [Recovered/Resolved]
  - Musculoskeletal pain [Not Recovered/Not Resolved]
  - Syncope [Recovered/Resolved]
  - Meningorrhagia [Recovered/Resolved]
  - Atrioventricular block [Recovered/Resolved]
  - Diverticular perforation [Recovered/Resolved]
  - Urinary tract infection [Unknown]
  - Sepsis [Fatal]
  - Asthenia [Recovered/Resolved]
  - Pulmonary embolism [Recovered/Resolved]
  - Bronchitis [Unknown]

NARRATIVE: CASE EVENT DATE: 200701
